FAERS Safety Report 5211515-0 (Version None)
Quarter: 2007Q1

REPORT INFORMATION
  Report Type: 
  Country: None (occurrence: None)
  Receive Date: 20070116
  Receipt Date: 20061229
  Transmission Date: 20070707
  Serious: Yes (Life-Threatening, Hospitalization)
  Sender: FDA-Public Use
  Company Number: PAR_1201_2007

PATIENT
  Age: 14 Year
  Sex: Male

DRUGS (1)
  1. IBUPROFEN [Suspect]
     Indication: INTENTIONAL OVERDOSE
     Dosage: 100 G UNK PO
     Route: 048

REACTIONS (5)
  - ACIDOSIS [None]
  - COMA [None]
  - HEART RATE INCREASED [None]
  - HYPOTENSION [None]
  - OVERDOSE [None]
